FAERS Safety Report 8402110-0 (Version None)
Quarter: 2012Q2

REPORT INFORMATION
  Report Type: 
  Country: None (occurrence: None)
  Receive Date: 20120601
  Receipt Date: 20120530
  Transmission Date: 20120825
  Serious: No
  Sender: FDA-Public Use
  Company Number: US-BAYER-2012-053799

PATIENT
  Age: 26 Year
  Sex: Female

DRUGS (1)
  1. BEYAZ [Suspect]
     Indication: CONTRACEPTION
     Dosage: UNK UNK, QD
     Route: 048
     Dates: start: 20120301

REACTIONS (2)
  - MENSTRUATION DELAYED [None]
  - WITHDRAWAL BLEED [None]
